FAERS Safety Report 7543991-2 (Version None)
Quarter: 2011Q2

REPORT INFORMATION
  Report Type: 
  Country: None (occurrence: None)
  Receive Date: 20110613
  Receipt Date: 20041203
  Transmission Date: 20111010
  Serious: Yes (Hospitalization, Other)
  Sender: FDA-Public Use
  Company Number: PHHO2004ES16594

PATIENT
  Sex: Male

DRUGS (6)
  1. CALCIUM CARBONATE [Concomitant]
  2. OMEPRAZOLE [Concomitant]
  3. PREDNISONE [Concomitant]
  4. ZOLEDRONIC ACID [Suspect]
     Dates: start: 20030130
  5. MELPHALAN HYDROCHLORIDE [Concomitant]
  6. VITAMIN D [Concomitant]

REACTIONS (1)
  - SEPSIS [None]
